FAERS Safety Report 7324618-1 (Version None)
Quarter: 2011Q1

REPORT INFORMATION
  Report Type: 
  Country: None (occurrence: None)
  Receive Date: 20110218
  Receipt Date: 20110202
  Transmission Date: 20110831
  Serious: Yes (Hospitalization, Other)
  Sender: FDA-Public Use
  Company Number: ACO_21675_2011

PATIENT
  Age: 50 Year
  Sex: Male
  Weight: 86.2 kg

DRUGS (4)
  1. AMPYRA [Suspect]
     Indication: GAIT DISTURBANCE
     Dosage: (10 MG, Q 12 HRS, ORAL) (10 MG, Q 12 HRS, ORAL)
     Route: 048
     Dates: start: 20110205, end: 20110208
  2. AMPYRA [Suspect]
     Indication: GAIT DISTURBANCE
     Dosage: (10 MG, Q 12 HRS, ORAL) (10 MG, Q 12 HRS, ORAL)
     Route: 048
     Dates: start: 20100101, end: 20110201
  3. AMITRIPTYLINE HYDROCHLORIDE [Concomitant]
  4. AMANTADINE HCL [Concomitant]

REACTIONS (8)
  - CONSTIPATION [None]
  - BACK PAIN [None]
  - INSOMNIA [None]
  - THROMBOSIS [None]
  - DYSSTASIA [None]
  - PRURITUS [None]
  - MOBILITY DECREASED [None]
  - DIZZINESS [None]
